FAERS Safety Report 23916168 (Version 1)
Quarter: 2024Q2

REPORT INFORMATION
  Report Type: Report from Study
  Country: GR (occurrence: GR)
  Receive Date: 20240529
  Receipt Date: 20240529
  Transmission Date: 20240716
  Serious: Yes (Hospitalization, Other)
  Sender: FDA-Public Use
  Company Number: GR-SOCIETAL CDMO GAINESVILLE, LLC-SOC-2024-000009

PATIENT
  Age: 58 Year
  Sex: Female

DRUGS (2)
  1. VERAPAMIL HYDROCHLORIDE [Suspect]
     Active Substance: VERAPAMIL HYDROCHLORIDE
     Indication: Product used for unknown indication
     Dosage: 20 TAB, ONE TIME DOSE
     Route: 048
  2. NIFEDIPINE [Suspect]
     Active Substance: NIFEDIPINE
     Indication: Product used for unknown indication
     Dosage: 28 TAB, ONE TIME DOSE
     Route: 048

REACTIONS (4)
  - Suicidal ideation [Unknown]
  - Acute respiratory distress syndrome [Unknown]
  - Intentional overdose [Unknown]
  - Vascular device infection [Unknown]
